FAERS Safety Report 4352354-2 (Version None)
Quarter: 2004Q2

REPORT INFORMATION
  Report Type: 
  Country: None (occurrence: None)
  Receive Date: 20040428
  Receipt Date: 20040417
  Transmission Date: 20050107
  Serious: Yes (Hospitalization)
  Sender: FDA-Public Use
  Company Number: FR-JNJFOC-20040403936

PATIENT
  Age: 64 Year
  Sex: Male

DRUGS (9)
  1. RISPERDAL [Suspect]
     Indication: ADVERSE EVENT
     Dosage: 8 MG, 1 IN 1 DAY, ORAL
     Route: 048
     Dates: start: 20040416, end: 20040416
  2. TENORDATE (NIF-TEN ^IMPERIAL^) [Concomitant]
  3. LASILIX 40 (FUROSEMIDE) [Concomitant]
  4. MODOPAR LP (MADOPAR) [Concomitant]
  5. DEPRENYL 5 (SELEGILINE) [Concomitant]
  6. TRIVASTAL LP (PIRIBEDIL) [Concomitant]
  7. NOOTROPYL (PIRACETAM) [Concomitant]
  8. FLUVOXAMINE MALEATE [Concomitant]
  9. CLONAZEPAM [Concomitant]

REACTIONS (2)
  - MEDICATION ERROR [None]
  - SOMNOLENCE [None]
